FAERS Safety Report 5056798-5 (Version None)
Quarter: 2006Q2

REPORT INFORMATION
  Report Type: 
  Country: None (occurrence: None)
  Receive Date: 20060616
  Receipt Date: 20060512
  Transmission Date: 20061013
  Serious: No
  Sender: FDA-Public Use
  Company Number: 2006US001090

PATIENT
  Sex: Male

DRUGS (5)
  1. VESICARE [Suspect]
     Indication: MICTURITION URGENCY
     Dosage: ORAL
     Route: 048
  2. FLUVASTATIN [Concomitant]
  3. CENTRUM SILVER (ASCORBIC ACID, MINERALS NOS, VITAMINS NOS, VITAMIN B N [Concomitant]
  4. SELENIUM (SELENIUM) [Concomitant]
  5. VITAMIN B COMPLEX CAP [Concomitant]

REACTIONS (1)
  - POLLAKIURIA [None]
